FAERS Safety Report 6637922-7 (Version None)
Quarter: 2010Q1

REPORT INFORMATION
  Report Type: 
  Country: None (occurrence: None)
  Receive Date: 20100317
  Receipt Date: 20100305
  Transmission Date: 20100710
  Serious: Yes (Hospitalization)
  Sender: FDA-Public Use
  Company Number: PHHY2010JP13416

PATIENT
  Age: 57 Year
  Sex: Male

DRUGS (2)
  1. TEGRETOL [Suspect]
     Indication: PAIN
     Dosage: 300 MG DAILY
     Route: 048
     Dates: start: 20091111, end: 20091201
  2. CYANAMIDE [Concomitant]
     Dosage: UNK
     Route: 048

REACTIONS (6)
  - DRUG ERUPTION [None]
  - DYSPNOEA [None]
  - ERYTHEMA MULTIFORME [None]
  - INFECTION [None]
  - LYMPHOCYTE STIMULATION TEST POSITIVE [None]
  - PYREXIA [None]
